FAERS Safety Report 19594193 (Version 1)
Quarter: 2021Q3

REPORT INFORMATION
  Report Type: Spontaneous
  Country: PT (occurrence: PT)
  Receive Date: 20210722
  Receipt Date: 20210722
  Transmission Date: 20211014
  Serious: Yes (Hospitalization)
  Sender: FDA-Public Use
  Company Number: PT-STRIDES ARCOLAB LIMITED-2021SP025273

PATIENT
  Age: 89 Year
  Sex: Female

DRUGS (2)
  1. MEMANTINE. [Suspect]
     Active Substance: MEMANTINE
     Indication: DEMENTIA
     Dosage: UNK
     Route: 065
  2. MEMANTINE. [Suspect]
     Active Substance: MEMANTINE
     Indication: PARKINSON^S DISEASE
     Dosage: UNK (PROGRESSIVE DOSE INCREASE)
     Route: 065

REACTIONS (2)
  - Myoclonus [Recovered/Resolved]
  - Off label use [Unknown]
